FAERS Safety Report 9219585 (Version 1)
Quarter: 2013Q2

REPORT INFORMATION
  Report Type: Spontaneous
  Country: US (occurrence: None)
  Receive Date: 20130409
  Receipt Date: 20130409
  Transmission Date: 20140414
  Serious: No
  Sender: FDA-Public Use
  Company Number: None

PATIENT
  Sex: Female
  Weight: 50.8 kg

DRUGS (2)
  1. WARFARIN [Suspect]
     Indication: CARDIAC PACEMAKER REPLACEMENT
     Dosage: 2 MG  DAILY  ORALLY?PAST 2 YRS.
     Route: 048
  2. WARFARIN [Suspect]
     Indication: ATRIAL FIBRILLATION
     Dosage: 3 MG  ALTERNATE DAYS  ORALLY?PAST 2 YRS
     Route: 048

REACTIONS (5)
  - Fall [None]
  - Wrist fracture [None]
  - Upper limb fracture [None]
  - Weight decreased [None]
  - Balance disorder [None]
